FAERS Safety Report 8982909 (Version 2)
Quarter: 2013Q1

REPORT INFORMATION
  Report Type: Report from Study
  Country: US (occurrence: US)
  Receive Date: 20121221
  Receipt Date: 20130206
  Transmission Date: 20140127
  Serious: No
  Sender: FDA-Public Use
  Company Number: US-ACTELION-A-US2012-76298

PATIENT
  Age: 70 Year
  Sex: Female

DRUGS (13)
  1. TRACLEER [Suspect]
     Indication: PULMONARY ARTERIAL HYPERTENSION
     Dosage: 125 MG, BID
     Route: 048
     Dates: start: 2004
  2. PROPANOLOL [Suspect]
     Indication: TREMOR
     Dosage: UNK
     Dates: start: 2007, end: 201203
  3. MULTIVITAMIN [Concomitant]
  4. CALCIUM [Concomitant]
  5. SULFACET [Concomitant]
  6. METRONIDAZOL [Concomitant]
  7. POTASSIUM [Concomitant]
     Dosage: UNK
  8. POTASSIUM [Concomitant]
     Dosage: UNK
  9. TRAZODONE [Concomitant]
  10. LASIX [Concomitant]
  11. ACIDOPHILUS [Concomitant]
  12. RESTASIS [Concomitant]
  13. SINGULAIR [Concomitant]

REACTIONS (13)
  - Memory impairment [Unknown]
  - Viral upper respiratory tract infection [Recovered/Resolved]
  - Deafness unilateral [Recovered/Resolved]
  - Eye disorder [Unknown]
  - Ear discomfort [Not Recovered/Not Resolved]
  - Tinnitus [Not Recovered/Not Resolved]
  - Vitamin D decreased [Recovering/Resolving]
  - Tremor [Not Recovered/Not Resolved]
  - Depression [Not Recovered/Not Resolved]
  - Heart rate decreased [Recovering/Resolving]
  - Hypotension [Recovering/Resolving]
  - Mastoiditis [Recovered/Resolved]
  - Sinusitis [Unknown]
